FAERS Safety Report 6230846-9 (Version None)
Quarter: 2009Q2

REPORT INFORMATION
  Report Type: 
  Country: None (occurrence: None)
  Receive Date: 20090611
  Receipt Date: 20090611
  Transmission Date: 20091009
  Serious: Yes (Hospitalization)
  Sender: FDA-Public Use
  Company Number: None

PATIENT
  Sex: Male
  Weight: 86.1834 kg

DRUGS (1)
  1. CLORAZEPATE TABLETS [Suspect]
     Indication: CONVULSION
     Dosage: 3.7 MG. 3 TI DAY ORAL
     Route: 048
     Dates: start: 20090425, end: 20090512

REACTIONS (2)
  - MALAISE [None]
  - PRODUCT SUBSTITUTION ISSUE [None]
